FAERS Safety Report 4306438-5 (Version None)
Quarter: 2004Q1

REPORT INFORMATION
  Report Type: 
  Country: None (occurrence: None)
  Receive Date: 20040225
  Receipt Date: 20030507
  Transmission Date: 20041129
  Serious: No
  Sender: FDA-Public Use
  Company Number: US-BRISTOL-MYERS SQUIBB COMPANY-12326419

PATIENT
  Age: 67 Year
  Sex: Female
  Weight: 66 kg

DRUGS (1)
  1. EXCEDRIN (MIGRAINE) [Suspect]
     Dosage: # OF DOSAGES:  2-4/ DAILY. TAKEN ^YEARS AGO^

REACTIONS (1)
  - ULCER [None]
